FAERS Safety Report 21663775 (Version 1)
Quarter: 2022Q4

REPORT INFORMATION
  Report Type: Spontaneous
  Country: US (occurrence: None)
  Receive Date: 20221129
  Receipt Date: 20221129
  Transmission Date: 20230112
  Serious: Yes (Life-Threatening, Hospitalization)
  Sender: FDA-Public Use
  Company Number: None

PATIENT
  Age: 27 Year
  Sex: Male
  Weight: 75 kg

DRUGS (5)
  1. CLOZAPINE [Suspect]
     Active Substance: CLOZAPINE
     Indication: Schizoaffective disorder
     Dosage: FREQUENCY : DAILY;?
     Route: 048
     Dates: start: 20220718, end: 20221026
  2. Benztropine 1mg QDaily [Concomitant]
  3. ChlorproMAZINE 25mg QDaily [Concomitant]
  4. ChlorproMAZINE 50mg QDaily [Concomitant]
  5. Acetaminophen 500mg Tab [Concomitant]

REACTIONS (3)
  - Constipation [None]
  - Large intestinal obstruction [None]
  - Shock [None]

NARRATIVE: CASE EVENT DATE: 20221026
